FAERS Safety Report 4843052-7 (Version None)
Quarter: 2005Q4

REPORT INFORMATION
  Report Type: 
  Country: None (occurrence: None)
  Receive Date: 20051130
  Receipt Date: 20051121
  Transmission Date: 20060501
  Serious: Yes (Hospitalization)
  Sender: FDA-Public Use
  Company Number: 2005-11-1207

PATIENT
  Age: 91 Year
  Sex: Male

DRUGS (2)
  1. FLUTAMIDE [Suspect]
     Indication: BENIGN PROSTATIC HYPERPLASIA
     Dosage: 250 MG Q8H ORAL
     Route: 048
  2. TRIPTORELIN [Concomitant]

REACTIONS (7)
  - ASTERIXIS [None]
  - ASTHENIA [None]
  - CHOLURIA [None]
  - DISEASE PROGRESSION [None]
  - DISORIENTATION [None]
  - HEPATIC ENCEPHALOPATHY [None]
  - HEPATITIS TOXIC [None]
